FAERS Safety Report 5207972-6 (Version None)
Quarter: 2007Q1

REPORT INFORMATION
  Report Type: 
  Country: None (occurrence: None)
  Receive Date: 20070110
  Receipt Date: 20061228
  Transmission Date: 20070707
  Serious: Yes (Hospitalization, Other)
  Sender: FDA-Public Use
  Company Number: HQWYE102102JAN07

PATIENT
  Age: 79 Year
  Sex: Male

DRUGS (6)
  1. CORDARONE [Suspect]
     Dosage: 200 MG TABLET; DAILY FREQUENCY NOT SPECIFIED ORAL
     Route: 048
  2. CRESTOR [Suspect]
     Dosage: 10 MG 1X PER 1 DAY ORAL
     Route: 048
  3. KARDEGIC (ACETYLSALICYLATE LYSINE, ) [Suspect]
     Dosage: 75 MG 1X PER 1 DAY ORAL
     Route: 048
  4. PLAVIX [Suspect]
     Dosage: 75 MG 1X PER 1 DAY ORAL
     Route: 048
     Dates: end: 20061121
  5. PREVISCAN (FLUINDIONE, ) [Suspect]
     Dosage: 15 MG 1X PER 1 DAY
     Dates: end: 20061121
  6. PREVISCAN (FLUINDIONE, ) [Suspect]
     Dosage: 10 MG 1X PER 1 DAY ORAL
     Route: 048
     Dates: start: 20061122

REACTIONS (3)
  - DRUG INTERACTION [None]
  - EPISTAXIS [None]
  - INTERNATIONAL NORMALISED RATIO INCREASED [None]
